FAERS Safety Report 12961376 (Version 5)
Quarter: 2017Q1

REPORT INFORMATION
  Report Type: Report from Study
  Country: BR (occurrence: BR)
  Receive Date: 20161121
  Receipt Date: 20170208
  Transmission Date: 20170428
  Serious: Yes (Hospitalization, Other)
  Sender: FDA-Public Use
  Company Number: BR-ALEXION PHARMACEUTICALS INC.-A201608440

PATIENT
  Age: 32 Year
  Sex: Female

DRUGS (2)
  1. SOLIRIS [Suspect]
     Active Substance: ECULIZUMAB
     Indication: PAROXYSMAL NOCTURNAL HAEMOGLOBINURIA
     Dosage: 600 MG, UNK
     Route: 042
     Dates: start: 20130422, end: 20130513
  2. SOLIRIS [Suspect]
     Active Substance: ECULIZUMAB
     Dosage: 900 MG, UNK
     Route: 042
     Dates: start: 20130520

REACTIONS (9)
  - Splenomegaly [Unknown]
  - Pneumonia [Unknown]
  - Laboratory test abnormal [Unknown]
  - Pyrexia [Unknown]
  - Pigmentation disorder [Unknown]
  - Immunodeficiency [Unknown]
  - Thrombocytopenia [Unknown]
  - Pulmonary congestion [Unknown]
  - Furuncle [Unknown]

NARRATIVE: CASE EVENT DATE: 201610
